FAERS Safety Report 5501171-6 (Version None)
Quarter: 2007Q4

REPORT INFORMATION
  Report Type: 
  Country: None (occurrence: None)
  Receive Date: 20071029
  Receipt Date: 20071026
  Transmission Date: 20080405
  Serious: No
  Sender: FDA-Public Use
  Company Number: US-BOEHRINGER INGELHEIM PHARMACEUTICALS, INC.-2007-BP-20974BP

PATIENT
  Sex: Female

DRUGS (1)
  1. FLOMAX [Suspect]
     Indication: NEPHROLITHIASIS
     Route: 048
     Dates: start: 20070301, end: 20070301

REACTIONS (2)
  - HYPOTENSION [None]
  - NASAL CONGESTION [None]
